FAERS Safety Report 8232828-4 (Version None)
Quarter: 2012Q1

REPORT INFORMATION
  Report Type: 
  Country: None (occurrence: None)
  Receive Date: 20120323
  Receipt Date: 20080819
  Transmission Date: 20120608
  Serious: Yes (Death)
  Sender: FDA-Public Use
  Company Number: PHEH2008US011954

PATIENT
  Sex: Male

DRUGS (15)
  1. PREDNISONE TAB [Concomitant]
     Dosage: 5 MG, 1AND HALF TAB DAILY
  2. DOCUSATE SODIUM [Concomitant]
     Dosage: 100 MG, QD
  3. LIPITOR [Concomitant]
     Dosage: 20 MG, QD
  4. SENNA-GEN [Concomitant]
     Dosage: 8.6 MG, 2 TABS AT BEDTIME
  5. PREDNISONE TAB [Concomitant]
     Dosage: 10 MG, QD
  6. ASPIRIN [Concomitant]
     Dosage: 325 MG, 1 TAB DAILY
  7. SYNTHROID [Concomitant]
     Dosage: 50 UG, QD
  8. NEORAL [Suspect]
     Indication: TRANSPLANT
     Dosage: 25 MG, BID, 25 MG, 3 CAP IN MORNING + 4 IN THE EVENING
     Route: 048
     Dates: start: 20060316, end: 20080715
  9. VINATE M [Concomitant]
     Dosage: 1 DF, 1 TAB DAILY
  10. FERROUS GLUCONATE [Concomitant]
     Dosage: 324 MG, QD
  11. CARVEDILOL [Concomitant]
     Dosage: 3.125 MG, 1 TAB TWICE DAILY
  12. MYCOPHENOLATE MOFETIL (CELLCEPT) [Concomitant]
     Dosage: 250 MG, 3 CAP TWICE DAILY
  13. CALCIUM WITH VITAMIN D [Concomitant]
  14. COZAAR [Concomitant]
     Dosage: 50 MG, 1 TAB DAILY
  15. PRILOSEC [Concomitant]
     Dosage: 20 MG, QD

REACTIONS (1)
  - DEATH [None]
